FAERS Safety Report 24628136 (Version 1)
Quarter: 2024Q4

REPORT INFORMATION
  Report Type: Spontaneous
  Country: CN (occurrence: CN)
  Receive Date: 20241117
  Receipt Date: 20241117
  Transmission Date: 20250114
  Serious: Yes (Hospitalization)
  Sender: Kenvue
  Company Number: CN-KENVUE-20241103095

PATIENT

DRUGS (2)
  1. CHILDRENS MOTRIN [Suspect]
     Active Substance: IBUPROFEN
     Indication: Upper respiratory tract infection
     Dosage: 15 MILLILITER, 2-3 TIMES/DAY
     Route: 048
     Dates: start: 20241025, end: 20241102
  2. ROXITHROMYCIN [Suspect]
     Active Substance: ROXITHROMYCIN
     Indication: Upper respiratory tract infection
     Dosage: 0.15 GRAM, THRICE A DAY
     Route: 048
     Dates: start: 20241025, end: 20241102

REACTIONS (2)
  - Product administered to patient of inappropriate age [Unknown]
  - Drug eruption [Recovering/Resolving]

NARRATIVE: CASE EVENT DATE: 20241025
